FAERS Safety Report 9186133 (Version 2)
Quarter: 2013Q2

REPORT INFORMATION
  Report Type: Spontaneous
  Country: US (occurrence: None)
  Receive Date: 20130321
  Receipt Date: 20130404
  Transmission Date: 20140414
  Serious: Yes (Hospitalization, Other)
  Sender: FDA-Public Use
  Company Number: PT13-066-AE

PATIENT
  Age: 74 Year
  Sex: Female
  Weight: 58.97 kg

DRUGS (6)
  1. FLECAINIDE ACETATE [Suspect]
     Indication: ATRIAL FIBRILLATION
     Route: 048
  2. AZOR [Concomitant]
  3. SYNTHROID [Concomitant]
  4. LIVALO [Concomitant]
  5. CELEBREX [Concomitant]
  6. AMIODARONE [Concomitant]

REACTIONS (10)
  - Drug ineffective [None]
  - Thyroid cancer [None]
  - Colon cancer [None]
  - Enteritis [None]
  - Breast cancer [None]
  - Therapeutic response unexpected with drug substitution [None]
  - Parathyroid tumour benign [None]
  - Atrial fibrillation [None]
  - Toxicity to various agents [None]
  - Product substitution issue [None]
